FAERS Safety Report 12217688 (Version 1)
Quarter: 2016Q1

REPORT INFORMATION
  Report Type: Report from Study
  Country: HU (occurrence: HU)
  Receive Date: 20160329
  Receipt Date: 20160329
  Transmission Date: 20160526
  Serious: Yes (Hospitalization)
  Sender: FDA-Public Use
  Company Number: HU-BAYER-2016-054659

PATIENT
  Age: 76 Year
  Sex: Female

DRUGS (1)
  1. MOXIFLOXACIN IV [Suspect]
     Active Substance: MOXIFLOXACIN
     Indication: PNEUMONIA BACTERIAL
     Dosage: UNK
     Dates: start: 20160304, end: 20160312

REACTIONS (1)
  - Haematochezia [Not Recovered/Not Resolved]

NARRATIVE: CASE EVENT DATE: 20160312
